FAERS Safety Report 24647064 (Version 8)
Quarter: 2025Q1

REPORT INFORMATION
  Report Type: Spontaneous
  Country: CA (occurrence: CA)
  Receive Date: 20241121
  Receipt Date: 20250331
  Transmission Date: 20250408
  Serious: Yes (Hospitalization, Other)
  Sender: PFIZER
  Company Number: CA-PFIZER INC-PV202400149732

PATIENT
  Age: 86 Year
  Sex: Female
  Weight: 66.3 kg

DRUGS (12)
  1. TRAZIMERA [Suspect]
     Active Substance: TRASTUZUMAB-QYYP
     Indication: Breast cancer
     Dosage: 8MG/KG LOADING, THEN 6MG/KG MAINTENANCE Q3WEEKS
     Dates: start: 20241114
  2. TRAZIMERA [Suspect]
     Active Substance: TRASTUZUMAB-QYYP
     Dosage: 8MG/KG LOADING, THEN 6MG/KG MAINTENANCE Q3WEEKS
     Dates: start: 20241114
  3. TRAZIMERA [Suspect]
     Active Substance: TRASTUZUMAB-QYYP
     Dosage: 8MG/KG LOADING, THEN 6MG/KG MAINTENANCE Q3WEEKS
     Dates: start: 20241205
  4. TRAZIMERA [Suspect]
     Active Substance: TRASTUZUMAB-QYYP
     Dosage: 390 MG EVERY 3 WEEKS (Q 3 WEEKS)
     Route: 042
     Dates: start: 20241230
  5. TRAZIMERA [Suspect]
     Active Substance: TRASTUZUMAB-QYYP
     Dosage: 408 MG, EVERY 3 WEEKS
     Route: 042
     Dates: start: 20250120
  6. TRAZIMERA [Suspect]
     Active Substance: TRASTUZUMAB-QYYP
     Dosage: 414MG/6MG PER KG; FREQUENCY: Q3WEEKS
     Route: 042
     Dates: start: 20250210
  7. TRAZIMERA [Suspect]
     Active Substance: TRASTUZUMAB-QYYP
     Dosage: 408 MG /6MG PER KG; FREQUENCY: Q3WEEKS
     Route: 042
     Dates: start: 20250303
  8. TRAZIMERA [Suspect]
     Active Substance: TRASTUZUMAB-QYYP
     Route: 042
     Dates: start: 20250324
  9. BISOPROLOL [Concomitant]
     Active Substance: BISOPROLOL
     Dosage: 5 MG, 1X/DAY
     Route: 048
  10. LETROZOLE [Concomitant]
     Active Substance: LETROZOLE
     Indication: Breast cancer
     Dosage: 2.5 MG, 1X/DAY
     Route: 048
  11. SODIUM CHLORIDE [Concomitant]
     Active Substance: SODIUM CHLORIDE
     Dates: start: 20241230, end: 20241230
  12. RIVAROXABAN [Concomitant]
     Active Substance: RIVAROXABAN
     Dosage: 15 MG, 1X/DAY
     Route: 048

REACTIONS (6)
  - Cardiac failure [Unknown]
  - Blood pressure systolic increased [Not Recovered/Not Resolved]
  - Heart rate decreased [Not Recovered/Not Resolved]
  - Lymphadenopathy [Recovering/Resolving]
  - Postoperative wound infection [Recovering/Resolving]
  - Blood pressure fluctuation [Not Recovered/Not Resolved]

NARRATIVE: CASE EVENT DATE: 20241114
